FAERS Safety Report 20470119 (Version 1)
Quarter: 2022Q1

REPORT INFORMATION
  Report Type: Spontaneous
  Country: US (occurrence: US)
  Receive Date: 20220214
  Receipt Date: 20220214
  Transmission Date: 20220423
  Serious: No
  Sender: FDA-Public Use
  Company Number: US-MYLANLABS-2022M1005460

PATIENT
  Age: 85 Year
  Sex: Female
  Weight: 64.41 kg

DRUGS (1)
  1. ESTRADIOL [Suspect]
     Active Substance: ESTRADIOL
     Indication: Cystitis
     Dosage: 0.01 PERCENT, QD
     Dates: start: 20211208

REACTIONS (3)
  - Intentional product misuse [Unknown]
  - Off label use [Unknown]
  - Product complaint [Unknown]

NARRATIVE: CASE EVENT DATE: 20211208
